FAERS Safety Report 25413748 (Version 2)
Quarter: 2025Q3

REPORT INFORMATION
  Report Type: Spontaneous
  Country: US (occurrence: US)
  Receive Date: 20250609
  Receipt Date: 20250816
  Transmission Date: 20251020
  Serious: No
  Sender: ALEXION PHARMACEUTICALS
  Company Number: US-AstraZeneca-CH-00883933A

PATIENT
  Sex: Female

DRUGS (2)
  1. VOYDEYA [Suspect]
     Active Substance: DANICOPAN
     Route: 065
  2. ULTOMIRIS [Suspect]
     Active Substance: RAVULIZUMAB-CWVZ
     Route: 065

REACTIONS (7)
  - Fatigue [Unknown]
  - Headache [Recovering/Resolving]
  - Dry mouth [Unknown]
  - Chills [Unknown]
  - Arthralgia [Unknown]
  - Feeling cold [Unknown]
  - Viral infection [Unknown]
